FAERS Safety Report 9229595 (Version 2)
Quarter: 2014Q1

REPORT INFORMATION
  Report Type: Spontaneous
  Country: US (occurrence: US)
  Receive Date: 20130414
  Receipt Date: 20140326
  Transmission Date: 20141002
  Serious: Yes (Hospitalization)
  Sender: FDA-Public Use
  Company Number: US-B.I. PHARMACEUTICALS,INC./RIDGEFIELD-2013-BI-09710BP

PATIENT
  Age: 90 Year
  Sex: Male
  Weight: 78.02 kg

DRUGS (13)
  1. PRADAXA [Suspect]
     Indication: CEREBROVASCULAR ACCIDENT PROPHYLAXIS
     Dosage: 300 MG
     Route: 048
     Dates: start: 201107, end: 20120920
  2. PRADAXA [Suspect]
     Indication: THROMBOSIS PROPHYLAXIS
  3. PRADAXA [Suspect]
     Indication: ATRIAL FIBRILLATION
  4. METOPROLOL [Concomitant]
     Indication: HYPERTENSION
     Dosage: 100 MG
     Route: 048
     Dates: start: 2009
  5. HYDROCORTISONE [Concomitant]
     Dosage: 20 MG
     Route: 048
     Dates: start: 2009
  6. METFORMIN [Concomitant]
     Indication: TYPE 2 DIABETES MELLITUS
     Dosage: 1000 MG
     Route: 048
     Dates: start: 2003
  7. LISINOPRIL [Concomitant]
     Indication: HYPERTENSION
     Dosage: 40 MG
     Route: 048
     Dates: start: 2003
  8. OXYBUTYNIN [Concomitant]
     Dosage: 10 MG
     Route: 048
  9. SIMVASTATIN [Concomitant]
     Dosage: 20 MG
     Route: 048
     Dates: start: 2003
  10. D3-2000 [Concomitant]
     Route: 065
  11. KETOCONAZOLE [Concomitant]
     Dosage: 600 MG
     Route: 048
  12. TAMSULOSIN [Concomitant]
     Dosage: 0.4 MG
     Route: 048
  13. AMLODIPINE [Concomitant]
     Dosage: 10 MG
     Route: 048

REACTIONS (2)
  - Lower gastrointestinal haemorrhage [Unknown]
  - Haemorrhagic anaemia [Unknown]
